FAERS Safety Report 7063918-X (Version None)
Quarter: 2010Q4

REPORT INFORMATION
  Report Type: 
  Country: None (occurrence: None)
  Receive Date: 20101026
  Receipt Date: 20101019
  Transmission Date: 20110411
  Serious: Yes (Other)
  Sender: FDA-Public Use
  Company Number: AU-US-EMD SERONO, INC.-7022403

PATIENT
  Sex: Female

DRUGS (1)
  1. REBIF [Suspect]
     Indication: PRODUCT USED FOR UNKNOWN INDICATION
     Route: 058
     Dates: start: 20080704

REACTIONS (3)
  - CHEST PAIN [None]
  - LYMPH NODES SCAN ABNORMAL [None]
  - SARCOIDOSIS [None]
